FAERS Safety Report 13418946 (Version 5)
Quarter: 2018Q2

REPORT INFORMATION
  Report Type: Report from Study
  Country: BR (occurrence: BR)
  Receive Date: 20170407
  Receipt Date: 20180423
  Transmission Date: 20180711
  Serious: Yes (Hospitalization, Other)
  Sender: FDA-Public Use
  Company Number: PHHY2017BR050311

PATIENT
  Age: 55 Year
  Sex: Female
  Weight: 88 kg

DRUGS (11)
  1. COSENTYX [Suspect]
     Active Substance: SECUKINUMAB
     Indication: PSORIATIC ARTHROPATHY
     Dosage: 300 MG, QW
     Route: 058
     Dates: start: 20170323, end: 20170413
  2. COSENTYX [Suspect]
     Active Substance: SECUKINUMAB
     Indication: RHEUMATOID ARTHRITIS
     Dosage: 300 MG, QW
     Route: 058
     Dates: start: 20170318
  3. COSENTYX [Suspect]
     Active Substance: SECUKINUMAB
     Dosage: 300 MG, QMO
     Route: 058
     Dates: start: 20170413
  4. BELIMUMAB [Suspect]
     Active Substance: BELIMUMAB
     Indication: PRODUCT USED FOR UNKNOWN INDICATION
     Dosage: UNK
     Route: 065
  5. LIVALO [Concomitant]
     Active Substance: PITAVASTATIN CALCIUM
     Indication: BLOOD TRIGLYCERIDES ABNORMAL
  6. ADALIMUMAB [Concomitant]
     Active Substance: ADALIMUMAB
     Indication: PRODUCT USED FOR UNKNOWN INDICATION
     Route: 065
  7. LIMBREL [Concomitant]
     Active Substance: DIETARY SUPPLEMENT\FLAVOCOXID
     Indication: PRODUCT USED FOR UNKNOWN INDICATION
     Route: 065
  8. NAPROXEN. [Concomitant]
     Active Substance: NAPROXEN
     Indication: PRODUCT USED FOR UNKNOWN INDICATION
     Dosage: 500 MG, Q8H
     Route: 048
  9. COSENTYX [Suspect]
     Active Substance: SECUKINUMAB
     Dosage: 300 MG, QMO
     Route: 058
     Dates: start: 20170512, end: 20180316
  10. LIVALO [Concomitant]
     Active Substance: PITAVASTATIN CALCIUM
     Indication: BLOOD CHOLESTEROL ABNORMAL
     Dosage: 2 MG, QD, 2 MONTHS AGO
     Route: 048
  11. NOVALGIN (METAMIZOLE SODIUM) [Concomitant]
     Active Substance: METAMIZOLE SODIUM
     Indication: PRODUCT USED FOR UNKNOWN INDICATION
     Dosage: 5 MG, QD, 2 MONTHS AGO
     Route: 048

REACTIONS (19)
  - Arthritis [Unknown]
  - Thrombosis [Recovering/Resolving]
  - Rheumatoid arthritis [Recovering/Resolving]
  - Arthralgia [Unknown]
  - Pain in extremity [Unknown]
  - Hypokinesia [Recovering/Resolving]
  - Product use in unapproved indication [Unknown]
  - Malaise [Unknown]
  - Swelling [Recovering/Resolving]
  - Weight increased [Unknown]
  - Erythema [Recovering/Resolving]
  - Rheumatic fever [Unknown]
  - Blood pressure increased [Recovering/Resolving]
  - Tendon pain [Unknown]
  - Pain [Recovering/Resolving]
  - Cardiac disorder [Unknown]
  - Psoriasis [Not Recovered/Not Resolved]
  - Gait disturbance [Unknown]
  - Influenza [Unknown]

NARRATIVE: CASE EVENT DATE: 20170316
